FAERS Safety Report 16478176 (Version 1)
Quarter: 2019Q2

REPORT INFORMATION
  Report Type: Spontaneous
  Country: US (occurrence: US)
  Receive Date: 20190626
  Receipt Date: 20190626
  Transmission Date: 20190711
  Serious: Yes (Hospitalization)
  Sender: FDA-Public Use
  Company Number: US-PFIZER INC-2019273563

PATIENT
  Age: 34 Year
  Sex: Female

DRUGS (6)
  1. CAMPTOSAR [Suspect]
     Active Substance: IRINOTECAN HYDROCHLORIDE
     Dosage: 286 MG, UNK (IRINOTECAN DOSE 286 MG)
     Route: 042
     Dates: start: 20190526
  2. FOLINIC ACID [Suspect]
     Active Substance: LEUCOVORIN
     Dosage: UNK
     Dates: start: 20190507
  3. CAMPTOSAR [Suspect]
     Active Substance: IRINOTECAN HYDROCHLORIDE
     Dosage: 100 MG, UNK
     Route: 042
  4. CETUXIMAB. [Suspect]
     Active Substance: CETUXIMAB
     Dosage: TOTAL DOSE 700 MG
     Dates: start: 20190526
  5. CAMPTOSAR [Suspect]
     Active Substance: IRINOTECAN HYDROCHLORIDE
     Indication: RECTAL CANCER
     Dosage: 284 MG, UNK (TOTAL DOSE IRINOTECAN 284 MG)
     Route: 042
     Dates: start: 20190507
  6. FLUOROURACIL. [Suspect]
     Active Substance: FLUOROURACIL
     Dosage: UNK
     Dates: start: 20190507

REACTIONS (2)
  - Febrile neutropenia [Unknown]
  - Hypotension [Unknown]
